FAERS Safety Report 21965015 (Version 1)
Quarter: 2023Q1

REPORT INFORMATION
  Report Type: Spontaneous
  Country: US (occurrence: US)
  Receive Date: 20230207
  Receipt Date: 20230207
  Transmission Date: 20230417
  Serious: No
  Sender: FDA-Public Use
  Company Number: US-JNJFOC-20230211092

PATIENT
  Sex: Male
  Weight: 80.812 kg

DRUGS (5)
  1. ERLEADA [Suspect]
     Active Substance: APALUTAMIDE
     Indication: Prostate cancer
     Route: 048
  2. CIALIS [Concomitant]
     Active Substance: TADALAFIL
     Indication: Micturition disorder
  3. TRAMADOL [Concomitant]
     Active Substance: TRAMADOL
     Indication: Back pain
  4. ESOMEPRAZOLE [Concomitant]
     Active Substance: ESOMEPRAZOLE
     Indication: Antacid therapy
  5. ALEVE [Concomitant]
     Active Substance: NAPROXEN SODIUM

REACTIONS (1)
  - Product dose omission issue [Unknown]
